FAERS Safety Report 8527396 (Version 3)
Quarter: 2015Q4

REPORT INFORMATION
  Report Type: Spontaneous
  Country: US (occurrence: US)
  Receive Date: 20120424
  Receipt Date: 20151221
  Transmission Date: 20160305
  Serious: Yes (Other)
  Sender: FDA-Public Use
  Company Number: US-BAYER-2012-038018

PATIENT
  Age: 38 Year
  Sex: Female
  Weight: 84 kg

DRUGS (6)
  1. GIANVI [Suspect]
     Active Substance: DROSPIRENONE\ETHINYL ESTRADIOL
     Indication: CONTRACEPTION
     Dosage: UNK
     Dates: start: 2011
  2. DIETHYLPROPION [Concomitant]
     Active Substance: DIETHYLPROPION
     Dosage: 75 MG, UNK
     Route: 048
     Dates: start: 20110630
  3. YASMIN [Suspect]
     Active Substance: DROSPIRENONE\ETHINYL ESTRADIOL
     Indication: CONTRACEPTION
     Dosage: UNK
     Dates: start: 2008
  4. YAZ [Suspect]
     Active Substance: DROSPIRENONE\ETHINYL ESTRADIOL
     Indication: CONTRACEPTION
     Dosage: UNK
     Route: 048
     Dates: start: 2008, end: 2011
  5. PAXIL [Concomitant]
     Active Substance: PAROXETINE HYDROCHLORIDE
     Indication: PALPITATIONS
  6. XANAX [Concomitant]
     Active Substance: ALPRAZOLAM
     Indication: PALPITATIONS

REACTIONS (11)
  - Pain [None]
  - Uterine leiomyoma [None]
  - Embolism arterial [None]
  - Palpitations [None]
  - Atrial fibrillation [None]
  - Injury [None]
  - Pelvic mass [None]
  - General physical health deterioration [None]
  - Emotional distress [None]
  - Thrombosis [None]
  - Anxiety [None]

NARRATIVE: CASE EVENT DATE: 200904
